FAERS Safety Report 7920915-7 (Version None)
Quarter: 2011Q4

REPORT INFORMATION
  Report Type: 
  Country: None (occurrence: None)
  Receive Date: 20111117
  Receipt Date: 20111012
  Transmission Date: 20120403
  Serious: No
  Sender: FDA-Public Use
  Company Number: US-GLAXOSMITHKLINE-A0948828A

PATIENT
  Sex: Female

DRUGS (11)
  1. VOTRIENT [Suspect]
     Indication: RENAL CANCER
     Dosage: 800MG PER DAY
     Route: 048
     Dates: start: 20110630
  2. METHOCARBAMOL [Concomitant]
  3. PROMETHAZINE [Concomitant]
  4. LEVOFLOXACIN [Concomitant]
  5. ONDANSETRON [Concomitant]
  6. TRAZODONE HCL [Concomitant]
  7. HYDROCODONE BITARTRATE AND ACETAMINOPHEN [Concomitant]
  8. HYDROMORPHONE HCL [Concomitant]
  9. METHADONE HCL [Concomitant]
  10. AMLODIPINE [Concomitant]
  11. LYRICA [Concomitant]

REACTIONS (1)
  - HYPERTENSION [None]
